FAERS Safety Report 8135026-8 (Version None)
Quarter: 2012Q1

REPORT INFORMATION
  Report Type: 
  Country: None (occurrence: None)
  Receive Date: 20120214
  Receipt Date: 20120208
  Transmission Date: 20120608
  Serious: Yes (Other)
  Sender: FDA-Public Use
  Company Number: BR-PFIZER INC-2012035310

PATIENT
  Age: 57 Year
  Sex: Male

DRUGS (1)
  1. CELEBREX [Suspect]
     Indication: PERIPHERAL NERVE LESION
     Dosage: 200 MG, 2X/DAY (1 CAPSULE EVERY 12 HOURS)
     Route: 048
     Dates: start: 20110801

REACTIONS (4)
  - INTERVERTEBRAL DISC PROTRUSION [None]
  - SCIATICA [None]
  - EPICONDYLITIS [None]
  - OSTEOARTHRITIS [None]
